FAERS Safety Report 5744964-2 (Version None)
Quarter: 2008Q2

REPORT INFORMATION
  Report Type: 
  Country: None (occurrence: None)
  Receive Date: 20080521
  Receipt Date: 20080513
  Transmission Date: 20081010
  Serious: Yes (Hospitalization)
  Sender: FDA-Public Use
  Company Number: DE-JNJFOC-20080502984

PATIENT
  Age: 70 Year
  Sex: Male

DRUGS (6)
  1. DURAGESIC-100 [Suspect]
     Indication: DRUG USE FOR UNKNOWN INDICATION
     Route: 062
  2. MUSARIL [Concomitant]
     Route: 065
  3. BECLAMETHASONE [Concomitant]
     Route: 055
  4. EUNERPAN [Concomitant]
     Route: 065
  5. NEXIUM [Concomitant]
     Route: 065
  6. CORTISONE [Concomitant]
     Route: 065

REACTIONS (5)
  - AGITATION [None]
  - BRAIN SCAN ABNORMAL [None]
  - COMA [None]
  - HALLUCINATION [None]
  - OVERDOSE [None]
